FAERS Safety Report 6013348-4 (Version None)
Quarter: 2008Q4

REPORT INFORMATION
  Report Type: 
  Country: None (occurrence: None)
  Receive Date: 20081218
  Receipt Date: 20081218
  Transmission Date: 20090506
  Serious: Yes (Life-Threatening, Hospitalization)
  Sender: FDA-Public Use
  Company Number: None

PATIENT
  Sex: Male
  Weight: 107 kg

DRUGS (3)
  1. HEPARIN [Suspect]
     Indication: ANTICOAGULANT THERAPY
     Dosage: 3000 UNITS Q15MIN X 2 DOSES IV PUSH
     Route: 042
     Dates: end: 20081215
  2. ISOVUE-370 [Suspect]
     Dosage: 100ML XL IV
     Route: 042
     Dates: end: 20081215
  3. SEE DESCRIPTION OF EVENT [Concomitant]

REACTIONS (8)
  - BLOOD PRESSURE DECREASED [None]
  - COUGH [None]
  - OROPHARYNGEAL PAIN [None]
  - RESPIRATORY ARREST [None]
  - RESPIRATORY DISTRESS [None]
  - SCROTAL HAEMATOMA [None]
  - THROAT TIGHTNESS [None]
  - VASCULAR PSEUDOANEURYSM [None]
